FAERS Safety Report 4946353-7 (Version None)
Quarter: 2006Q1

REPORT INFORMATION
  Report Type: 
  Country: None (occurrence: None)
  Receive Date: 20060317
  Receipt Date: 20060209
  Transmission Date: 20060701
  Serious: Yes (Death, Life-Threatening, Hospitalization, Other)
  Sender: FDA-Public Use
  Company Number: US-ABBOTT-06P-163-0324487-00

PATIENT
  Sex: Female
  Weight: 54.48 kg

DRUGS (1)
  1. VICODIN [Suspect]
     Indication: ARTHRALGIA
     Route: 048
     Dates: start: 20040701, end: 20060204

REACTIONS (16)
  - CARDIAC ARREST [None]
  - DEPRESSION [None]
  - FRACTURE NONUNION [None]
  - GASTROINTESTINAL HAEMORRHAGE [None]
  - HEPATIC FAILURE [None]
  - HYPONATRAEMIA [None]
  - HYPOTENSION [None]
  - LUNG CONSOLIDATION [None]
  - OEDEMA [None]
  - PANCREATITIS ACUTE [None]
  - PANIC DISORDER [None]
  - PERIRECTAL ABSCESS [None]
  - POSTOPERATIVE INFECTION [None]
  - RENAL FAILURE ACUTE [None]
  - VARICES OESOPHAGEAL [None]
  - VENTRICULAR FIBRILLATION [None]
